FAERS Safety Report 7495672-1 (Version None)
Quarter: 2011Q2

REPORT INFORMATION
  Report Type: 
  Country: None (occurrence: None)
  Receive Date: 20110523
  Receipt Date: 20110517
  Transmission Date: 20111010
  Serious: Yes (Other)
  Sender: FDA-Public Use
  Company Number: US-PFIZER INC-2011106908

PATIENT

DRUGS (2)
  1. GEODON [Suspect]
     Dosage: UNK
  2. REGLAN [Suspect]
     Dosage: UNK

REACTIONS (1)
  - TORSADE DE POINTES [None]
